FAERS Safety Report 25336528 (Version 1)
Quarter: 2025Q2

REPORT INFORMATION
  Report Type: Spontaneous
  Country: US (occurrence: US)
  Receive Date: 20250520
  Receipt Date: 20250520
  Transmission Date: 20250716
  Serious: Yes (Death, Other)
  Sender: MEITHEAL PHARMACEUTICALS
  Company Number: US-MEITHEAL-2025MPLIT00194

PATIENT
  Age: 58 Year
  Sex: Female

DRUGS (3)
  1. GEMCITABINE [Suspect]
     Active Substance: GEMCITABINE
     Indication: Pancreatic carcinoma metastatic
     Route: 065
  2. PACLITAXEL [Suspect]
     Active Substance: PACLITAXEL
     Indication: Pancreatic carcinoma metastatic
     Route: 065
  3. IVOSPEMIN [Suspect]
     Active Substance: IVOSPEMIN
     Indication: Pancreatic carcinoma metastatic
     Route: 065

REACTIONS (3)
  - Retinal toxicity [Unknown]
  - Neutropenia [Unknown]
  - Disease progression [Fatal]
